FAERS Safety Report 4925172-1 (Version None)
Quarter: 2006Q1

REPORT INFORMATION
  Report Type: 
  Country: None (occurrence: None)
  Receive Date: 20060228
  Receipt Date: 20051229
  Transmission Date: 20060701
  Serious: No
  Sender: FDA-Public Use
  Company Number: US-GLAXOSMITHKLINE-A0587339A

PATIENT
  Age: 71 Year
  Sex: Male

DRUGS (10)
  1. AVODART [Suspect]
     Indication: BENIGN PROSTATIC HYPERPLASIA
     Dosage: 1CAP PER DAY
     Route: 048
     Dates: start: 20051217
  2. CREAM [Suspect]
     Route: 065
  3. COREG [Concomitant]
  4. SOCORVIT [Concomitant]
     Route: 065
  5. PAROXETINE HCL [Concomitant]
  6. BENAZAPRIL [Concomitant]
     Route: 065
  7. PLAVIX [Concomitant]
  8. PULMICORT [Concomitant]
     Route: 065
  9. SEREVENT [Concomitant]
  10. FOLIC ACID [Concomitant]

REACTIONS (2)
  - BURNING SENSATION [None]
  - RASH [None]
